FAERS Safety Report 7577602-7 (Version None)
Quarter: 2011Q2

REPORT INFORMATION
  Report Type: 
  Country: None (occurrence: None)
  Receive Date: 20110628
  Receipt Date: 20100628
  Transmission Date: 20111010
  Serious: No
  Sender: FDA-Public Use
  Company Number: US-KINGPHARMUSA00001-K201000810

PATIENT
  Sex: Female
  Weight: 48.526 kg

DRUGS (3)
  1. VITAMIN TAB [Concomitant]
     Indication: SUPPLEMENTATION THERAPY
     Dosage: UNK
  2. HERBAL PREPARATION [Concomitant]
     Indication: LYME DISEASE
     Dosage: UNK
  3. BICILLIN L-A [Suspect]
     Indication: LYME DISEASE
     Dosage: 1.2 MILLION UNITS, QW
     Dates: start: 20100601

REACTIONS (3)
  - BURNING SENSATION [None]
  - ASTHENIA [None]
  - PAIN IN EXTREMITY [None]
